FAERS Safety Report 10162511 (Version 3)
Quarter: 2014Q2

REPORT INFORMATION
  Report Type: Spontaneous
  Country: US (occurrence: US)
  Receive Date: 20140509
  Receipt Date: 20140605
  Transmission Date: 20141212
  Serious: No
  Sender: FDA-Public Use
  Company Number: US-PFIZER INC-2013334871

PATIENT
  Age: 46 Year
  Sex: Female
  Weight: 96.15 kg

DRUGS (11)
  1. LYRICA [Suspect]
     Indication: NEURALGIA
     Dosage: 75 MG, 3X/DAY
     Route: 048
     Dates: start: 2003
  2. LYRICA [Suspect]
     Indication: PAIN
  3. LYRICA [Suspect]
     Indication: HYPOAESTHESIA
  4. LYRICA [Suspect]
     Indication: PARAESTHESIA
  5. LISINOPRIL W/HYDROCHLOROTHIAZIDE [Concomitant]
     Indication: HYPERTENSION
     Dosage: 20/12.5 MG, UNK
     Route: 048
  6. ATRIPLA [Concomitant]
     Indication: HIV INFECTION
     Dosage: UNK
  7. BUPROPION [Concomitant]
     Indication: DEPRESSION
     Dosage: 300 MG, UNK
  8. BACLOFEN [Concomitant]
     Dosage: 10 MG, UNK
  9. ALPRAZOLAM [Concomitant]
     Dosage: 0.25 MG, 2X/DAY
  10. OXYCODONE [Concomitant]
     Indication: PAIN
     Dosage: 10 MG (BY TAKING 2 TABLETS OF 5MG), 4X/DAY
     Route: 048
  11. MORPHINE [Concomitant]
     Dosage: 15 MG, UNK

REACTIONS (2)
  - Paraesthesia [Unknown]
  - Pain in extremity [Unknown]
